FAERS Safety Report 6693159-7 (Version None)
Quarter: 2010Q2

REPORT INFORMATION
  Report Type: 
  Country: None (occurrence: None)
  Receive Date: 20100421
  Receipt Date: 20100421
  Transmission Date: 20101027
  Serious: Yes (Hospitalization)
  Sender: FDA-Public Use
  Company Number: None

PATIENT
  Age: 63 Year
  Sex: Male
  Weight: 111.1313 kg

DRUGS (1)
  1. SIMVASTATIN [Suspect]
     Indication: LIPIDS INCREASED
     Dosage: 40 MG DAILY PO
     Route: 048
     Dates: start: 20090509, end: 20090717

REACTIONS (1)
  - TENDON RUPTURE [None]
